FAERS Safety Report 12687649 (Version 1)
Quarter: 2016Q3

REPORT INFORMATION
  Report Type: Spontaneous
  Country: KR (occurrence: KR)
  Receive Date: 20160826
  Receipt Date: 20160826
  Transmission Date: 20161109
  Serious: Yes (Other)
  Sender: FDA-Public Use
  Company Number: KR-ASTRAZENECA-2016SE89022

PATIENT
  Age: 45 Year
  Sex: Male

DRUGS (9)
  1. ESOMEPRAZOLE [Suspect]
     Active Substance: ESOMEPRAZOLE
     Indication: GASTROOESOPHAGEAL REFLUX DISEASE
     Route: 042
  2. ASPIRIN. [Concomitant]
     Active Substance: ASPIRIN
  3. INSULIN [Concomitant]
     Active Substance: INSULIN NOS
     Route: 042
  4. SYMBICORT [Concomitant]
     Active Substance: BUDESONIDE\FORMOTEROL FUMARATE DIHYDRATE
     Indication: ASTHMA
     Dosage: 160/4.5 MCG
  5. CANDESARTAN [Concomitant]
     Active Substance: CANDESARTAN
  6. LACTULOSE. [Concomitant]
     Active Substance: LACTULOSE
     Indication: CONSTIPATION
     Route: 048
  7. CLOPIDOGREL [Concomitant]
     Active Substance: CLOPIDOGREL BISULFATE
  8. ATORVASTATIN [Concomitant]
     Active Substance: ATORVASTATIN
  9. SALINE [Concomitant]
     Active Substance: SODIUM CHLORIDE

REACTIONS (1)
  - Rhabdomyolysis [Recovered/Resolved]
